FAERS Safety Report 5803611-1 (Version None)
Quarter: 2008Q3

REPORT INFORMATION
  Report Type: 
  Country: None (occurrence: None)
  Receive Date: 20080708
  Receipt Date: 20080626
  Transmission Date: 20090109
  Serious: Yes (Other)
  Sender: FDA-Public Use
  Company Number: GB-PFIZER INC-2008046558

PATIENT
  Sex: Male
  Weight: 96.2 kg

DRUGS (8)
  1. CHANTIX [Suspect]
     Indication: SMOKING CESSATION THERAPY
     Route: 048
     Dates: start: 20080428, end: 20080515
  2. ALL OTHER THERAPEUTIC PRODUCTS [Concomitant]
  3. SERETIDE [Concomitant]
     Dosage: TEXT:500 ACCUHALER-FREQ:ONE PUFF TWICE A DAY
     Route: 055
  4. SIMVASTATIN [Concomitant]
     Route: 048
  5. AMLODIPINE [Concomitant]
     Route: 048
  6. BENDROFLUMETHIAZIDE [Concomitant]
     Route: 048
  7. TIOTROPIUM [Concomitant]
     Route: 055
  8. PERINDOPRIL ERBUMINE [Concomitant]
     Route: 048

REACTIONS (4)
  - ARTHRALGIA [None]
  - OEDEMA PERIPHERAL [None]
  - PAIN IN EXTREMITY [None]
  - SEPSIS [None]
